FAERS Safety Report 18847044 (Version 1)
Quarter: 2021Q1

REPORT INFORMATION
  Report Type: Spontaneous
  Country: ES (occurrence: ES)
  Receive Date: 20210204
  Receipt Date: 20210204
  Transmission Date: 20210419
  Serious: Yes (Other)
  Sender: FDA-Public Use
  Company Number: ES-LUPIN PHARMACEUTICALS INC.-2021-01089

PATIENT
  Age: 58 Year
  Sex: Male

DRUGS (1)
  1. TRIAMCINOLONE [Suspect]
     Active Substance: TRIAMCINOLONE
     Indication: CHALAZION
     Dosage: 0.5 MILLILITER (INJECTED INTO THE CHALAZION, TRIGON DEPOT 40 MG/ML)
     Route: 065

REACTIONS (2)
  - Chorioretinopathy [Recovered/Resolved]
  - Off label use [Unknown]
